FAERS Safety Report 18628615 (Version 1)
Quarter: 2020Q4

REPORT INFORMATION
  Report Type: Spontaneous
  Country: NO (occurrence: NO)
  Receive Date: 20201217
  Receipt Date: 20201217
  Transmission Date: 20210114
  Serious: Yes (Other)
  Sender: FDA-Public Use
  Company Number: NO-TEVA-2020-NO-1858501

PATIENT
  Age: 51 Year
  Sex: Female

DRUGS (16)
  1. BETNOVAT [Concomitant]
     Active Substance: BETAMETHASONE
  2. SEROQUEL [Concomitant]
     Active Substance: QUETIAPINE FUMARATE
     Dosage: 2 TBL - 25 MG MORNING AND 2 TBL - 25 MG EVENING, UNIT DOSE: 50 MG
  3. NYCOPLUS C-VITAMIN [Concomitant]
  4. TRAJENTA [Concomitant]
     Active Substance: LINAGLIPTIN
  5. LOCOID [Concomitant]
     Active Substance: HYDROCORTISONE BUTYRATE
  6. AMLODIPINE [Concomitant]
     Active Substance: AMLODIPINE BESYLATE
  7. JARDIANCE [Concomitant]
     Active Substance: EMPAGLIFLOZIN
  8. LEVAXIN [Concomitant]
     Active Substance: LEVOTHYROXINE SODIUM
     Dosage: MONDAY: 150 MICROGRAM PER DAY, TUESDAY-SUNDAY: 75 MICROGRAM PER DAY, UNIT DOSE: 75 MCG
  9. PENTASA [Concomitant]
     Active Substance: MESALAMINE
     Indication: COLITIS ULCERATIVE
     Dosage: 2 TABLE SPOONS PER 1 GRAM X2, 2 GRAM
     Dates: start: 20201102, end: 20201108
  10. HUMULIN NPH KWIKPEN [Concomitant]
  11. OLANZAPINE TEVA [Suspect]
     Active Substance: OLANZAPINE
     Indication: MANIA
     Dosage: 20 MG
     Route: 048
     Dates: start: 20201030, end: 20201111
  12. CETIRIZIN SANDOZ [Concomitant]
     Active Substance: CETIRIZINE HYDROCHLORIDE
     Indication: PRURITUS
     Dosage: 30 MILLIGRAM DAILY;
     Dates: start: 20201108, end: 20201111
  13. SEROQUEL [Concomitant]
     Active Substance: QUETIAPINE FUMARATE
     Dosage: 2 TBL - 150 MG MORNING AND 2 TBL - 150 MG EVENING, UNIT DOSE: 300 MG
  14. PARACETAMOL [Concomitant]
     Active Substance: ACETAMINOPHEN
     Indication: PAIN
     Dosage: 2 TABLETS OF 500 MG X 3,  1 GRAM
     Dates: start: 20201109, end: 20201111
  15. VAGIFEM [Concomitant]
     Active Substance: ESTRADIOL
     Dosage: 1 VAGINAL TABLET TWICE WEEKLY, 10 MCG
  16. DICLOXACILLIN BLUEFISH [Concomitant]
     Indication: ABDOMINAL ABSCESS
     Dosage: 2000 MILLIGRAM DAILY;
     Dates: start: 20201107, end: 20201111

REACTIONS (3)
  - Drug eruption [Recovered/Resolved]
  - Drug reaction with eosinophilia and systemic symptoms [Recovered/Resolved]
  - Vision blurred [Recovered/Resolved]

NARRATIVE: CASE EVENT DATE: 202011
